FAERS Safety Report 4845491-7 (Version None)
Quarter: 2005Q4

REPORT INFORMATION
  Report Type: 
  Country: None (occurrence: None)
  Receive Date: 20051205
  Receipt Date: 20050914
  Transmission Date: 20060501
  Serious: Yes (Hospitalization)
  Sender: FDA-Public Use
  Company Number: PHBS2005JP13552

PATIENT
  Age: 66 Year
  Sex: Female
  Weight: 48 kg

DRUGS (8)
  1. NEORAL [Suspect]
     Indication: MYELODYSPLASTIC SYNDROME
     Dosage: 100 MG/D
     Route: 048
     Dates: start: 20020801, end: 20040601
  2. NEORAL [Suspect]
     Dosage: 100 MG/D
     Route: 048
     Dates: start: 20040707, end: 20040730
  3. NEORAL [Suspect]
     Dosage: 75 MG/D
     Route: 048
     Dates: start: 20040802
  4. SELBEX [Concomitant]
     Dosage: 150 MG/D
     Route: 048
     Dates: start: 20020801
  5. BISOLVON [Concomitant]
     Dosage: 12 MG/D
     Route: 048
     Dates: start: 20020801
  6. PURSENNID [Concomitant]
     Dosage: 24 MG/D
     Route: 048
     Dates: start: 20020801
  7. PRIMOBOLAN-DEPOT INJ [Concomitant]
     Dosage: 15 MG/D
     Route: 048
     Dates: start: 20020801
  8. PALGIN [Concomitant]
     Dosage: 0.5 G/D
     Route: 048
     Dates: start: 20020801

REACTIONS (7)
  - C-REACTIVE PROTEIN INCREASED [None]
  - CHEST X-RAY ABNORMAL [None]
  - COUGH [None]
  - DYSPNOEA [None]
  - INTERSTITIAL LUNG DISEASE [None]
  - LYMPHADENOPATHY [None]
  - PYREXIA [None]
